FAERS Safety Report 18281599 (Version 1)
Quarter: 2020Q3

REPORT INFORMATION
  Report Type: Spontaneous
  Country: US (occurrence: US)
  Receive Date: 20200917
  Receipt Date: 20200917
  Transmission Date: 20201103
  Serious: Yes (Life-Threatening)
  Sender: FDA-Public Use
  Company Number: None

PATIENT
  Age: 56 Year
  Sex: Female
  Weight: 127.5 kg

DRUGS (2)
  1. CANAGLIFLOZIN [Concomitant]
     Active Substance: CANAGLIFLOZIN
  2. INVOKANA [Suspect]
     Active Substance: CANAGLIFLOZIN

REACTIONS (7)
  - Bacterial infection [None]
  - Necrotising fasciitis [None]
  - Actinomyces test positive [None]
  - Groin abscess [None]
  - Culture positive [None]
  - Pain [None]
  - Necrosis [None]

NARRATIVE: CASE EVENT DATE: 20200903
